FAERS Safety Report 4645338-8 (Version None)
Quarter: 2005Q2

REPORT INFORMATION
  Report Type: 
  Country: None (occurrence: None)
  Receive Date: 20050422
  Receipt Date: 20050412
  Transmission Date: 20051028
  Serious: Yes (Hospitalization)
  Sender: FDA-Public Use
  Company Number: 2005059237

PATIENT
  Age: 83 Year
  Sex: Male

DRUGS (3)
  1. SPIRONOLACTONE [Suspect]
     Indication: ILL-DEFINED DISORDER
  2. METOCLOPRAMIDE [Suspect]
     Indication: VOMITING
  3. CAPTOPRIL [Concomitant]

REACTIONS (13)
  - ALKALOSIS [None]
  - BLOOD ALKALINE PHOSPHATASE INCREASED [None]
  - BLOOD GLUCOSE INCREASED [None]
  - BLOOD POTASSIUM INCREASED [None]
  - BLOOD URIC ACID DECREASED [None]
  - CONFUSIONAL STATE [None]
  - DYSTONIA [None]
  - HYPOTENSION [None]
  - IMPAIRED GASTRIC EMPTYING [None]
  - RENAL FAILURE ACUTE [None]
  - SOMNOLENCE [None]
  - TETANUS [None]
  - VOMITING [None]
